FAERS Safety Report 9949486 (Version 2)
Quarter: 2014Q2

REPORT INFORMATION
  Report Type: Spontaneous
  Country: US (occurrence: US)
  Receive Date: 20140304
  Receipt Date: 20140506
  Transmission Date: 20141212
  Serious: Yes (Disabling)
  Sender: FDA-Public Use
  Company Number: US-SHIRE-US201400164

PATIENT
  Age: 12 Year
  Sex: Male
  Weight: 34 kg

DRUGS (3)
  1. VYVANSE [Suspect]
     Dosage: 40 MG, UNKNOWN
     Route: 048
     Dates: start: 20140203, end: 20140220
  2. INTUNIV [Concomitant]
     Indication: ATTENTION DEFICIT/HYPERACTIVITY DISORDER
     Dosage: 3 MG, UNKNOWN
     Route: 048
     Dates: start: 20130122
  3. VYVANSE [Suspect]
     Indication: ATTENTION DEFICIT/HYPERACTIVITY DISORDER
     Dosage: 30 MG, UNKNOWN
     Route: 048
     Dates: start: 20131119, end: 20140202

REACTIONS (3)
  - Staring [Recovered/Resolved]
  - Muscle spasms [Recovered/Resolved]
  - Convulsion [Recovered/Resolved]
